FAERS Safety Report 4856738-5 (Version None)
Quarter: 2005Q4

REPORT INFORMATION
  Report Type: 
  Country: None (occurrence: None)
  Receive Date: 20051219
  Receipt Date: 20050118
  Transmission Date: 20060501
  Serious: No
  Sender: FDA-Public Use
  Company Number: US-GLAXOSMITHKLINE-A0541051A

PATIENT
  Age: 43 Year
  Sex: Female

DRUGS (3)
  1. NICODERM CQ [Suspect]
  2. NICODERM CQ [Suspect]
     Dates: end: 20050118
  3. NICODERM CQ [Suspect]

REACTIONS (3)
  - ABNORMAL DREAMS [None]
  - HOT FLUSH [None]
  - NIGHT SWEATS [None]
